FAERS Safety Report 7809652-7 (Version None)
Quarter: 2011Q4

REPORT INFORMATION
  Report Type: 
  Country: None (occurrence: None)
  Receive Date: 20111012
  Receipt Date: 20111007
  Transmission Date: 20120403
  Serious: Yes (Hospitalization)
  Sender: FDA-Public Use
  Company Number: US-GLAXOSMITHKLINE-A0791869A

PATIENT
  Age: 60 Year
  Sex: Male
  Weight: 122.6 kg

DRUGS (10)
  1. METOPROLOL TARTRATE [Concomitant]
  2. LOVASTATIN [Concomitant]
  3. LASIX [Concomitant]
  4. BENICAR [Concomitant]
  5. AVANDIA [Suspect]
     Indication: TYPE 2 DIABETES MELLITUS
     Dosage: 4MG TWICE PER DAY
     Route: 048
     Dates: start: 20010101, end: 20080901
  6. LISINOPRIL [Concomitant]
  7. AVANDAMET [Suspect]
     Indication: TYPE 2 DIABETES MELLITUS
     Route: 048
     Dates: start: 20040101
  8. GLYBURIDE [Concomitant]
  9. ZOCOR [Concomitant]
  10. DIGOXIN [Concomitant]

REACTIONS (3)
  - RENAL INJURY [None]
  - CORONARY ARTERY DISEASE [None]
  - CARDIAC FAILURE CONGESTIVE [None]
